FAERS Safety Report 4736132-8 (Version None)
Quarter: 2005Q3

REPORT INFORMATION
  Report Type: 
  Country: None (occurrence: None)
  Receive Date: 20050728
  Receipt Date: 20050406
  Transmission Date: 20060218
  Serious: No
  Sender: FDA-Public Use
  Company Number: 200418756US

PATIENT
  Age: 40 Year
  Sex: Female

DRUGS (2)
  1. TELITHROMYCIN (KETEK) TABLETS [Suspect]
     Indication: CHRONIC SINUSITIS
     Dosage: PO
     Route: 048
  2. TELITHROMYCIN (KETEK) TABLETS [Suspect]
     Indication: CHRONIC SINUSITIS
     Dosage: PO
     Route: 048

REACTIONS (3)
  - DIPLOPIA [None]
  - VISION BLURRED [None]
  - VISUAL DISTURBANCE [None]
